FAERS Safety Report 19893864 (Version 1)
Quarter: 2021Q3

REPORT INFORMATION
  Report Type: Spontaneous
  Country: NL (occurrence: NL)
  Receive Date: 20210929
  Receipt Date: 20210929
  Transmission Date: 20211014
  Serious: Yes (Other)
  Sender: FDA-Public Use
  Company Number: NL-SUN PHARMACEUTICAL INDUSTRIES LTD-2021RR-312691

PATIENT
  Sex: Male
  Weight: 105 kg

DRUGS (3)
  1. ATORVASTATIN [Suspect]
     Active Substance: ATORVASTATIN
     Indication: HYPERCHOLESTEROLAEMIA
     Dosage: 40 MILLIGRAM, 1DOSE/HR, 1 X PER DAY 1 PIECE, TABLET
     Route: 065
     Dates: start: 2014
  2. INSULINE GEWOON INJVLST 100IE/ML / ACTRAPID INJ 100IE/ML FLACON 10M... [Concomitant]
     Indication: PRODUCT USED FOR UNKNOWN INDICATION
     Dosage: SOLUTION FOR INJECTION, 100 IE / ML (UNITS PER MILLILITER)
     Route: 065
  3. INSULINE GLARGINE 100E/ML INJVLST / ABASAGLAR INJVLST 100E/ML PEN 3... [Concomitant]
     Indication: PRODUCT USED FOR UNKNOWN INDICATION
     Dosage: SOLUTION FOR INJECTION, 100 UNITS / ML (UNITS PER MILLILITER)
     Route: 065

REACTIONS (3)
  - Muscle rupture [Unknown]
  - Musculoskeletal stiffness [Recovered/Resolved]
  - Back pain [Unknown]
